FAERS Safety Report 7097731-4 (Version None)
Quarter: 2010Q4

REPORT INFORMATION
  Report Type: 
  Country: None (occurrence: None)
  Receive Date: 20101112
  Receipt Date: 20101030
  Transmission Date: 20110411
  Serious: Yes (Other)
  Sender: FDA-Public Use
  Company Number: SK-PAR PHARMACEUTICAL, INC-2010SCPR002277

PATIENT

DRUGS (3)
  1. CABERGOLINE [Suspect]
     Indication: PROLACTINOMA
     Dosage: 5 MG/WEEK ALTERNATIVELY.
     Route: 065
  2. BROMOCRIPTINE [Concomitant]
     Indication: PROLACTINOMA
     Dosage: UNK
     Route: 065
  3. QUINAGOLIDE [Concomitant]
     Indication: PROLACTINOMA
     Dosage: UNK
     Route: 065

REACTIONS (3)
  - EATING DISORDER [None]
  - IMPULSE-CONTROL DISORDER [None]
  - PATHOLOGICAL GAMBLING [None]
